FAERS Safety Report 12067345 (Version 1)
Quarter: 2016Q1

REPORT INFORMATION
  Report Type: Spontaneous
  Country: US (occurrence: US)
  Receive Date: 20160210
  Receipt Date: 20160210
  Transmission Date: 20160526
  Serious: No
  Sender: FDA-Public Use
  Company Number: US-JNJFOC-20160203922

PATIENT
  Age: 27 Year
  Sex: Female
  Weight: 92.99 kg

DRUGS (2)
  1. CHILDRENS MOTRIN [Suspect]
     Active Substance: IBUPROFEN
     Route: 048
  2. CHILDRENS MOTRIN [Suspect]
     Active Substance: IBUPROFEN
     Indication: PYREXIA
     Dosage: ONE TIME AS NEEDED
     Route: 048
     Dates: start: 20160203, end: 20160203

REACTIONS (4)
  - Wrong drug administered [Unknown]
  - Expired product administered [Unknown]
  - Drug administered to patient of inappropriate age [None]
  - Off label use [Unknown]
